FAERS Safety Report 8306529-8 (Version None)
Quarter: 2012Q2

REPORT INFORMATION
  Report Type: 
  Country: None (occurrence: None)
  Receive Date: 20120424
  Receipt Date: 20120410
  Transmission Date: 20120825
  Serious: Yes (Other)
  Sender: FDA-Public Use
  Company Number: US-BAYER-2012-028719

PATIENT
  Age: 76 Year
  Sex: Female
  Weight: 54 kg

DRUGS (5)
  1. PRAVASTATIN [Concomitant]
  2. CITRACAL [Concomitant]
  3. MULTI-VITAMINS [Concomitant]
  4. NAPROXEN (ALEVE) [Suspect]
     Indication: BACK PAIN
     Dosage: 1 DF, PRN
     Route: 048
     Dates: start: 20120320
  5. CALCIUM [Concomitant]

REACTIONS (6)
  - RESPIRATORY RATE INCREASED [None]
  - DYSPNOEA [None]
  - DRY MOUTH [None]
  - SKIN WARM [None]
  - PYREXIA [None]
  - NAUSEA [None]
